FAERS Safety Report 22339885 (Version 2)
Quarter: 2024Q2

REPORT INFORMATION
  Report Type: Report from Study
  Country: HU (occurrence: HU)
  Receive Date: 20230518
  Receipt Date: 20240501
  Transmission Date: 20240716
  Serious: Yes (Other)
  Sender: FDA-Public Use
  Company Number: HU-002147023-NVSC2023HU030459

PATIENT
  Sex: Female

DRUGS (6)
  1. LETROZOLE [Suspect]
     Active Substance: LETROZOLE
     Indication: Product used for unknown indication
     Dosage: 2.5 MILLIGRAM, QD, 2.5 MG, QD
     Route: 065
  2. KISQALI [Suspect]
     Active Substance: RIBOCICLIB
     Indication: Breast neoplasm
     Dosage: 600 MILLIGRAM, 600 MG
     Route: 065
     Dates: start: 20230119
  3. KISQALI [Suspect]
     Active Substance: RIBOCICLIB
     Indication: Metastases to bone
     Dosage: 2 DOSAGE FORM, QD, 2 DOSAGE FORM, QD
     Route: 048
     Dates: start: 20230315
  4. KISQALI [Suspect]
     Active Substance: RIBOCICLIB
     Dosage: 600 MILLIGRAM, QD (3 TABLETS)
     Route: 048
     Dates: start: 20230216, end: 20230308
  5. KISQALI [Suspect]
     Active Substance: RIBOCICLIB
     Dosage: 1 DOSAGE FORM, QD
     Route: 048
  6. PANTOPRAZOLE [Suspect]
     Active Substance: PANTOPRAZOLE
     Indication: Product used for unknown indication
     Dosage: 40 MILLIGRAM, QD (1X, ON AN EMPTY STOMACH IN THE MORNING)
     Route: 065
     Dates: start: 20230216, end: 20230308

REACTIONS (6)
  - Electrocardiogram QT prolonged [Unknown]
  - Leukopenia [Unknown]
  - Hypergastrinaemia [Unknown]
  - Hepatic enzyme increased [Recovered/Resolved]
  - Liver function test increased [Unknown]
  - Product use in unapproved indication [Unknown]

NARRATIVE: CASE EVENT DATE: 20230119
